FAERS Safety Report 6412228-X (Version None)
Quarter: 2009Q4

REPORT INFORMATION
  Report Type: 
  Country: None (occurrence: None)
  Receive Date: 20091023
  Receipt Date: 20091014
  Transmission Date: 20100525
  Serious: Yes (Hospitalization)
  Sender: FDA-Public Use
  Company Number: B0598638A

PATIENT
  Sex: Male
  Weight: 66 kg

DRUGS (2)
  1. COMBIVIR [Suspect]
     Indication: HIV INFECTION
     Dosage: 450MG TWICE PER DAY
     Route: 048
     Dates: start: 20050809
  2. TMC-278 [Suspect]
     Indication: HIV INFECTION
     Dates: start: 20050809

REACTIONS (7)
  - ENCEPHALOPATHY [None]
  - EPILEPSY [None]
  - MUSCULOSKELETAL PAIN [None]
  - POLYNEUROPATHY [None]
  - PYREXIA [None]
  - RESPIRATORY TRACT INFECTION [None]
  - TONGUE BITING [None]
